FAERS Safety Report 5694842-2 (Version None)
Quarter: 2008Q2

REPORT INFORMATION
  Report Type: 
  Country: None (occurrence: None)
  Receive Date: 20080404
  Receipt Date: 20080327
  Transmission Date: 20081010
  Serious: Yes (Hospitalization)
  Sender: FDA-Public Use
  Company Number: US-AVENTIS-200718311US

PATIENT
  Sex: Male

DRUGS (9)
  1. KETEK [Suspect]
     Dosage: DOSE: UNK, 400MG INCREMENTS
     Dates: start: 20051126, end: 20051128
  2. KETEK [Suspect]
     Dosage: DOSE: UNK, 400MG INCREMENTS
     Dates: start: 20051126, end: 20051128
  3. KETEK [Suspect]
     Indication: HEADACHE
     Dosage: DOSE: UNK, 400MG INCREMENTS
     Dates: start: 20051126, end: 20051128
  4. PRILOSEC [Concomitant]
  5. TAMSULOSIN HCL [Concomitant]
  6. ADVIL [Concomitant]
  7. AMOXICILLIN [Concomitant]
  8. LEVAQUIN [Concomitant]
  9. CIPRO [Concomitant]

REACTIONS (14)
  - CHROMATURIA [None]
  - DECREASED APPETITE [None]
  - EPSTEIN-BARR VIRUS ANTIBODY POSITIVE [None]
  - EPSTEIN-BARR VIRUS INFECTION [None]
  - FAECES DISCOLOURED [None]
  - FATIGUE [None]
  - JAUNDICE [None]
  - LIVER FUNCTION TEST ABNORMAL [None]
  - LYMPHOCYTE MORPHOLOGY ABNORMAL [None]
  - NAUSEA [None]
  - OCULAR ICTERUS [None]
  - PANCYTOPENIA [None]
  - PHARYNGOLARYNGEAL PAIN [None]
  - SPLENOMEGALY [None]
